FAERS Safety Report 13200267 (Version 1)
Quarter: 2017Q1

REPORT INFORMATION
  Report Type: Report from Study
  Country: US (occurrence: US)
  Receive Date: 20170208
  Receipt Date: 20170208
  Transmission Date: 20170428
  Serious: Yes (Other)
  Sender: FDA-Public Use
  Company Number: US-MYLANLABS-2017M1007197

PATIENT

DRUGS (5)
  1. FLUOROURACIL. [Suspect]
     Active Substance: FLUOROURACIL
     Indication: NASOPHARYNGEAL CANCER
     Dosage: THREE CYCLES OF 1000MG/M2 GIVEN ON DAYS 64-67, 85-88 AND 106-109 AFTER RADIATION
     Route: 065
  2. CISPLATIN. [Suspect]
     Active Substance: CISPLATIN
     Indication: NASOPHARYNGEAL CANCER
     Dosage: THREE CYCLES OF 100 MG/M2 GIVEN ON DAYS 1, 22 AND 43 OF RADIATION
     Route: 065
  3. BEVACIZUMAB [Suspect]
     Active Substance: BEVACIZUMAB
     Indication: NASOPHARYNGEAL CANCER
     Dosage: THREE CYCLES OF 15 MG/KG GIVEN ON DAYS 1, 22 AND 43 OF RADIATION
     Route: 065
  4. BEVACIZUMAB [Suspect]
     Active Substance: BEVACIZUMAB
     Dosage: THREE CYCLES OF 15 MG/KG GIVEN ON DAYS 64, 85 AND 106 AFTER RADIATION
     Route: 065
  5. CISPLATIN. [Suspect]
     Active Substance: CISPLATIN
     Dosage: THREE CYCLES OF 80 MG/M2 GIVEN ON DAYS 64, 85 AND 106 AFTER RADIATION
     Route: 065

REACTIONS (2)
  - Upper gastrointestinal haemorrhage [Unknown]
  - Lower gastrointestinal haemorrhage [Unknown]
